FAERS Safety Report 4337784-7 (Version None)
Quarter: 2004Q2

REPORT INFORMATION
  Report Type: 
  Country: None (occurrence: None)
  Receive Date: 20040413
  Receipt Date: 20040401
  Transmission Date: 20050107
  Serious: Yes (Death, Other)
  Sender: FDA-Public Use
  Company Number: KR-BRISTOL-MYERS SQUIBB COMPANY-12549440

PATIENT

DRUGS (3)
  1. ETOPOSIDE [Suspect]
     Indication: NON-SMALL CELL LUNG CANCER
     Dosage: DAYS 1-14 DURING CCRT  DAYS 1-21 DURING CT
     Route: 048
  2. CISPLATIN [Suspect]
     Indication: NON-SMALL CELL LUNG CANCER
     Dosage: DAY 1 OF 28-DAY CYCLE
     Route: 042
  3. RADIOTHERAPY [Concomitant]
     Indication: NON-SMALL CELL LUNG CANCER
     Dosage: 1.8 GY/FRACTION; 63 GY OVER 7 WEEKS

REACTIONS (11)
  - ANAEMIA [None]
  - DIARRHOEA [None]
  - FEBRILE NEUTROPENIA [None]
  - HEPATITIS [None]
  - INFECTION [None]
  - NAUSEA [None]
  - OESOPHAGITIS [None]
  - RADIATION PNEUMONITIS [None]
  - STOMATITIS [None]
  - THROMBOCYTOPENIA [None]
  - VOMITING [None]
